FAERS Safety Report 21351710 (Version 1)
Quarter: 2022Q3

REPORT INFORMATION
  Report Type: Spontaneous
  Country: AU (occurrence: AU)
  Receive Date: 20220919
  Receipt Date: 20220919
  Transmission Date: 20221027
  Serious: Yes (Other)
  Sender: FDA-Public Use
  Company Number: AU-PAIPHARMA-2022-AU-000242

PATIENT
  Age: 45 Year
  Sex: Male

DRUGS (1)
  1. RISPERIDONE [Suspect]
     Active Substance: RISPERIDONE
     Indication: Schizophrenia

REACTIONS (3)
  - Orbital myositis [Recovered/Resolved]
  - Ophthalmoplegia [Recovered/Resolved]
  - Optic nerve disorder [Recovered/Resolved]
